FAERS Safety Report 14617402 (Version 2)
Quarter: 2019Q1

REPORT INFORMATION
  Report Type: Spontaneous
  Country: US (occurrence: US)
  Receive Date: 20180309
  Receipt Date: 20190306
  Transmission Date: 20190417
  Serious: Yes (Other)
  Sender: FDA-Public Use
  Company Number: US-ASTRAZENECA-2018SE27778

PATIENT
  Age: 43 Year
  Sex: Male
  Weight: 114.3 kg

DRUGS (16)
  1. PANTOPRAZOLE [Suspect]
     Active Substance: PANTOPRAZOLE
     Indication: GASTROOESOPHAGEAL REFLUX DISEASE
     Dosage: GENERIC 40MG, DAILY
     Route: 065
     Dates: start: 2016, end: 2017
  2. FUROSEMIDE. [Concomitant]
     Active Substance: FUROSEMIDE
  3. FISH OIL [Concomitant]
     Active Substance: FISH OIL
  4. HYDRALAZINE [Concomitant]
     Active Substance: HYDRALAZINE HYDROCHLORIDE
  5. NEXIUM [Suspect]
     Active Substance: ESOMEPRAZOLE MAGNESIUM
     Indication: GASTROOESOPHAGEAL REFLUX DISEASE
     Route: 048
     Dates: start: 2010, end: 2015
  6. NEXIUM [Suspect]
     Active Substance: ESOMEPRAZOLE MAGNESIUM
     Indication: GASTROOESOPHAGEAL REFLUX DISEASE
     Route: 048
  7. NEXIUM 24HR [Suspect]
     Active Substance: ESOMEPRAZOLE MAGNESIUM
     Indication: GASTROOESOPHAGEAL REFLUX DISEASE
     Route: 048
  8. FLONASE [Concomitant]
     Active Substance: FLUTICASONE PROPIONATE
  9. CLONIDINE HYDROCHLORIDE. [Concomitant]
     Active Substance: CLONIDINE HYDROCHLORIDE
  10. CENTRUM SILVER [Concomitant]
     Active Substance: MINERALS\VITAMINS
  11. OMEPRAZOLE. [Suspect]
     Active Substance: OMEPRAZOLE
     Indication: GASTROOESOPHAGEAL REFLUX DISEASE
     Route: 065
  12. CARVEDILOL. [Concomitant]
     Active Substance: CARVEDILOL
  13. ARANESP [Concomitant]
     Active Substance: DARBEPOETIN ALFA
  14. FENOFIBRATE. [Concomitant]
     Active Substance: FENOFIBRATE
  15. LEVEMIR [Concomitant]
     Active Substance: INSULIN DETEMIR
  16. OMEPRAZOLE. [Suspect]
     Active Substance: OMEPRAZOLE
     Indication: GASTROOESOPHAGEAL REFLUX DISEASE
     Dosage: GENERIC 40 MG, DAILY
     Route: 065
     Dates: start: 2016, end: 2017

REACTIONS (5)
  - End stage renal disease [Unknown]
  - Nephrogenic anaemia [Unknown]
  - Renal failure [Not Recovered/Not Resolved]
  - Hyperparathyroidism secondary [Unknown]
  - Chronic kidney disease [Unknown]

NARRATIVE: CASE EVENT DATE: 2009
